FAERS Safety Report 16083069 (Version 1)
Quarter: 2019Q1

REPORT INFORMATION
  Report Type: Report from Study
  Country: FR (occurrence: FR)
  Receive Date: 20190318
  Receipt Date: 20190318
  Transmission Date: 20190418
  Serious: Yes (Hospitalization)
  Sender: FDA-Public Use
  Company Number: FR-ROCHE-2281708

PATIENT
  Age: 69 Year
  Sex: Female
  Weight: 56.8 kg

DRUGS (3)
  1. ATEZOLIZUMAB. [Suspect]
     Active Substance: ATEZOLIZUMAB
     Indication: OVARIAN CANCER
     Route: 042
  2. BEVACIZUMAB. [Suspect]
     Active Substance: BEVACIZUMAB
     Indication: OVARIAN CANCER
     Dosage: ON 14/FEB/2019, RECEIVED MOST RECENT DOSE OF BEVACIZUMAB.
     Route: 042
     Dates: start: 20190214
  3. BLINDED ASPIRIN [Suspect]
     Active Substance: ASPIRIN
     Indication: OVARIAN CANCER
     Route: 048

REACTIONS (2)
  - Nerve compression [Not Recovered/Not Resolved]
  - Fatigue [Not Recovered/Not Resolved]

NARRATIVE: CASE EVENT DATE: 20190307
